FAERS Safety Report 8496348-4 (Version None)
Quarter: 2012Q3

REPORT INFORMATION
  Report Type: 
  Country: None (occurrence: None)
  Receive Date: 20120709
  Receipt Date: 20120703
  Transmission Date: 20120928
  Serious: No
  Sender: FDA-Public Use
  Company Number: US-PFIZER INC-2012140532

PATIENT
  Sex: Female
  Weight: 54.422 kg

DRUGS (6)
  1. PRISTIQ [Suspect]
     Dosage: 100 MG, 1X/DAY
     Route: 048
  2. PRISTIQ [Suspect]
     Dosage: 50 MG, DAILY
     Route: 048
     Dates: start: 20110218, end: 20110501
  3. PRISTIQ [Suspect]
     Indication: HOT FLUSH
     Dosage: 50 MG, 1X/DAY
     Route: 048
     Dates: start: 20110101
  4. PRISTIQ [Suspect]
     Dosage: 50 MG, UNK
     Route: 048
     Dates: start: 20111201
  5. ZANTAC [Concomitant]
     Dosage: 75 MG, UNK
  6. PRISTIQ [Suspect]
     Dosage: 100 MG, UNK
     Route: 048
     Dates: start: 20110526

REACTIONS (6)
  - WITHDRAWAL SYNDROME [None]
  - TREMOR [None]
  - HEADACHE [None]
  - FEELING ABNORMAL [None]
  - DRUG INEFFECTIVE [None]
  - SINUSITIS [None]
